FAERS Safety Report 14955810 (Version 1)
Quarter: 2018Q2

REPORT INFORMATION
  Report Type: Spontaneous
  Country: US (occurrence: US)
  Receive Date: 20180509
  Receipt Date: 20180509
  Transmission Date: 20180711
  Serious: Yes (Hospitalization)
  Sender: FDA-Public Use
  Company Number: None

PATIENT
  Age: 24 Year
  Sex: Female

DRUGS (8)
  1. NOVOLOG [Concomitant]
     Active Substance: INSULIN ASPART
  2. PRENATAL TAB [Concomitant]
  3. LOVENOX [Concomitant]
     Active Substance: ENOXAPARIN SODIUM
  4. PROGESTERONE. [Concomitant]
     Active Substance: PROGESTERONE
  5. MAKENA [Suspect]
     Active Substance: HYDROXYPROGESTERONE CAPROATE
     Route: 030
     Dates: start: 20180410, end: 201805
  6. GLIPIZIDE. [Concomitant]
     Active Substance: GLIPIZIDE
  7. INSULIN [Concomitant]
     Active Substance: INSULIN NOS
  8. VITAMIN D3 [Concomitant]
     Active Substance: CHOLECALCIFEROL

REACTIONS (1)
  - Abortion spontaneous [None]

NARRATIVE: CASE EVENT DATE: 20180506
